FAERS Safety Report 14757416 (Version 1)
Quarter: 2018Q2

REPORT INFORMATION
  Report Type: Spontaneous
  Country: US (occurrence: US)
  Receive Date: 20180409
  Receipt Date: 20180409
  Transmission Date: 20180711
  Serious: No
  Sender: FDA-Public Use
  Company Number: None

PATIENT
  Age: 49 Year
  Sex: Male
  Weight: 63.5 kg

DRUGS (1)
  1. VECURONIUM [Suspect]
     Active Substance: VECURONIUM BROMIDE
     Indication: PARALYSIS
     Dates: start: 20171101, end: 20180130

REACTIONS (6)
  - Aspergillus infection [None]
  - Cardiac arrest [None]
  - Gastrointestinal haemorrhage [None]
  - Haemoglobin decreased [None]
  - Respiratory failure [None]
  - Sepsis [None]

NARRATIVE: CASE EVENT DATE: 20171027
